FAERS Safety Report 10911277 (Version 2)
Quarter: 2015Q2

REPORT INFORMATION
  Report Type: Report from Study
  Country: AU (occurrence: AU)
  Receive Date: 20150312
  Receipt Date: 20150406
  Transmission Date: 20150821
  Serious: Yes (Hospitalization)
  Sender: FDA-Public Use
  Company Number: PHHY2014AU014725

PATIENT
  Age: 37 Year
  Sex: Male

DRUGS (9)
  1. LITHIUM. [Suspect]
     Active Substance: LITHIUM
     Indication: NEUTROPHIL COUNT DECREASED
     Dosage: UNK
     Route: 048
  2. CLOZARIL [Suspect]
     Active Substance: CLOZAPINE
     Dosage: 350 MG, QD
     Route: 048
  3. AMISULPRIDE [Concomitant]
     Active Substance: AMISULPRIDE
     Indication: SCHIZOPHRENIA
     Dosage: 400 MG, BID
     Route: 048
     Dates: start: 201502
  4. CLOZARIL [Suspect]
     Active Substance: CLOZAPINE
     Dosage: UNK
     Route: 048
     Dates: start: 20150309
  5. INTERFERON [Concomitant]
     Active Substance: INTERFERON
     Indication: HEPATITIS C
     Dosage: UNK
     Route: 065
  6. CLOZARIL [Suspect]
     Active Substance: CLOZAPINE
     Indication: SCHIZOPHRENIA
     Dosage: 600 MG, QD
     Route: 048
     Dates: start: 20010806, end: 20150206
  7. CLOZARIL [Suspect]
     Active Substance: CLOZAPINE
     Dosage: 300 MG, QD
     Route: 048
  8. ESCITALOPRAM [Concomitant]
     Active Substance: ESCITALOPRAM OXALATE
     Indication: ANXIETY
     Dosage: 20 MG, IN THE MORNING
     Route: 048
  9. LITHIUM. [Suspect]
     Active Substance: LITHIUM
     Dosage: 500 MG, AT NIGHT
     Route: 048

REACTIONS (14)
  - Thinking abnormal [Unknown]
  - Somatic delusion [Unknown]
  - Leukopenia [Recovered/Resolved]
  - Thrombocytopenia [Unknown]
  - White blood cell count decreased [Recovered/Resolved]
  - Persecutory delusion [Unknown]
  - Delusion [Unknown]
  - Schizophrenia [Unknown]
  - Delusion of reference [Unknown]
  - Acute psychosis [Unknown]
  - Splenomegaly [Unknown]
  - Malaise [Unknown]
  - Liver disorder [Unknown]
  - Neutropenia [Recovered/Resolved]

NARRATIVE: CASE EVENT DATE: 20140204
